FAERS Safety Report 14553481 (Version 1)
Quarter: 2018Q1

REPORT INFORMATION
  Report Type: Spontaneous
  Country: US (occurrence: US)
  Receive Date: 20180220
  Receipt Date: 20180220
  Transmission Date: 20180509
  Serious: No
  Sender: FDA-Public Use
  Company Number: US-B.I. PHARMACEUTICALS,INC./RIDGEFIELD-2018-BI-008262

PATIENT
  Age: 91 Year
  Sex: Female

DRUGS (4)
  1. COMBIVENT [Suspect]
     Active Substance: ALBUTEROL SULFATE\IPRATROPIUM BROMIDE
     Indication: ORGANISING PNEUMONIA
     Dosage: 4 DOSES/DAY;  FORM STRENGTH: 20 MCG / 100 MCG; FORMULATION: INHALATION SPRAY? ADMINISTRATION CORRECT
     Route: 055
     Dates: start: 20180205
  2. LEVOFLOXACIN. [Concomitant]
     Active Substance: LEVOFLOXACIN
     Indication: PRODUCT USED FOR UNKNOWN INDICATION
     Dosage: ONCE DAILY;  FORM STRENGTH: 750MG; FORMULATION: CAPSULE
     Route: 048
     Dates: start: 201802
  3. MUSINEX [Concomitant]
     Indication: PRODUCT USED FOR UNKNOWN INDICATION
     Dosage: 2 TABLETS TWICE DAILY;  FORMULATION: TABLET;
     Route: 048
     Dates: start: 201802
  4. RALOXIFENE. [Concomitant]
     Active Substance: RALOXIFENE
     Indication: ARTHRITIS
     Dosage: ONCE DAILY;  FORM STRENGTH: 60MG; FORMULATION: TABLET
     Route: 048
     Dates: start: 201706

REACTIONS (4)
  - Panic attack [Not Recovered/Not Resolved]
  - Gait disturbance [Not Recovered/Not Resolved]
  - Off label use [Unknown]
  - Dysgeusia [Not Recovered/Not Resolved]

NARRATIVE: CASE EVENT DATE: 201802
